FAERS Safety Report 5982061-1 (Version None)
Quarter: 2008Q4

REPORT INFORMATION
  Report Type: 
  Country: None (occurrence: None)
  Receive Date: 20081202
  Receipt Date: 20081118
  Transmission Date: 20090506
  Serious: Yes (Hospitalization)
  Sender: FDA-Public Use
  Company Number: 231339K08USA

PATIENT
  Age: 52 Year
  Sex: Male

DRUGS (3)
  1. REBIF [Suspect]
     Indication: MULTIPLE SCLEROSIS
     Dosage: 44 MCG, 3 IN 1 WEEKS, SUBCUTANEOUS
     Route: 058
     Dates: start: 20050427
  2. PREDNISONE [Concomitant]
  3. TIZANIDINE HCL [Concomitant]

REACTIONS (4)
  - ABDOMINAL PAIN [None]
  - POST PROCEDURAL COMPLICATION [None]
  - PYREXIA [None]
  - X-RAY ABNORMAL [None]
